FAERS Safety Report 24372223 (Version 1)
Quarter: 2024Q3

REPORT INFORMATION
  Report Type: Report from Study
  Country: US (occurrence: US)
  Receive Date: 20240927
  Receipt Date: 20240927
  Transmission Date: 20241017
  Serious: Yes (Other)
  Sender: UCB
  Company Number: US-UCBSA-2024048394

PATIENT
  Age: 29 Year
  Sex: Female

DRUGS (2)
  1. FINTEPLA [Suspect]
     Active Substance: FENFLURAMINE
     Indication: Lennox-Gastaut syndrome
     Dosage: 6.8 MILLILITER, 2X/DAY (BID)
     Dates: start: 20240115, end: 2024
  2. FINTEPLA [Suspect]
     Active Substance: FENFLURAMINE
     Dosage: 6.4 MILLILITER, 2X/DAY (BID)
     Dates: start: 2024

REACTIONS (2)
  - Seizure cluster [Not Recovered/Not Resolved]
  - Overdose [Unknown]

NARRATIVE: CASE EVENT DATE: 20240115
